FAERS Safety Report 25918975 (Version 1)
Quarter: 2025Q4

REPORT INFORMATION
  Report Type: Report from Study
  Country: US (occurrence: US)
  Receive Date: 20251014
  Receipt Date: 20251014
  Transmission Date: 20260118
  Serious: Yes (Life-Threatening, Hospitalization)
  Sender: MYLAN
  Company Number: US-MYLANLABS-2025M1086941

PATIENT
  Age: 85 Year
  Sex: Female

DRUGS (3)
  1. APIXABAN [Suspect]
     Active Substance: APIXABAN
     Indication: Atrial fibrillation
     Dosage: 2.5 MILLIGRAM, BID
  2. PROTHROMBIN [Concomitant]
     Active Substance: PROTHROMBIN
     Indication: Cerebral haemorrhage
     Dosage: UNK, RECEIVED AT 3795 UNITS
  3. PROTHROMBIN [Concomitant]
     Active Substance: PROTHROMBIN
     Indication: Intraventricular haemorrhage

REACTIONS (3)
  - Cerebral mass effect [Recovered/Resolved]
  - Cerebral haemorrhage [Recovered/Resolved]
  - Intraventricular haemorrhage [Recovered/Resolved]
